FAERS Safety Report 22965253 (Version 3)
Quarter: 2024Q1

REPORT INFORMATION
  Report Type: Report from Study
  Country: GR (occurrence: GR)
  Receive Date: 20230921
  Receipt Date: 20240221
  Transmission Date: 20240410
  Serious: Yes (Other)
  Sender: FDA-Public Use
  Company Number: GR-ABBVIE-5392840

PATIENT
  Age: 54 Year
  Sex: Female

DRUGS (3)
  1. CARBIDOPA\LEVODOPA [Suspect]
     Active Substance: CARBIDOPA\LEVODOPA
     Indication: Parkinson^s disease
     Dosage: MORNING DOSE: 11.0 ML; CONTINUOUS RATE: 3.6 ML/H; EXTRA DOSE: 2.0 ML
     Route: 050
     Dates: start: 20180801
  2. CARBIDOPA\LEVODOPA [Suspect]
     Active Substance: CARBIDOPA\LEVODOPA
     Dosage: MORNING DOSE: 4.8 ML; CONTINUOUS RATE: 3.0 ML/H; EXTRA DOSE: 3.0 ML
     Route: 050
  3. CARBIDOPA\LEVODOPA [Suspect]
     Active Substance: CARBIDOPA\LEVODOPA
     Dosage: MORNING DOSE: 4.8 ML; CONTINUOUS RATE: 3.0 ML/H; EXTRA DOSE: 3.0 ML
     Route: 050

REACTIONS (5)
  - Epilepsy [Recovered/Resolved]
  - On and off phenomenon [Unknown]
  - Mobility decreased [Unknown]
  - Product quality issue [Unknown]
  - Stoma site reaction [Not Recovered/Not Resolved]

NARRATIVE: CASE EVENT DATE: 20230916
